FAERS Safety Report 23777149 (Version 1)
Quarter: 2024Q2

REPORT INFORMATION
  Report Type: Spontaneous
  Country: JP (occurrence: JP)
  Receive Date: 20240424
  Receipt Date: 20240424
  Transmission Date: 20240715
  Serious: Yes (Hospitalization)
  Sender: FDA-Public Use
  Company Number: JP-GILEAD-2024-0670367

PATIENT
  Age: 7 Decade
  Sex: Female

DRUGS (1)
  1. EPCLUSA [Suspect]
     Active Substance: SOFOSBUVIR\VELPATASVIR
     Indication: Hepatitis C
     Dosage: UNK
     Route: 048
     Dates: start: 202402, end: 20240423

REACTIONS (1)
  - Nephropathy [Unknown]
